FAERS Safety Report 24737232 (Version 1)
Quarter: 2024Q4

REPORT INFORMATION
  Report Type: Spontaneous
  Country: US (occurrence: None)
  Receive Date: 20241213
  Receipt Date: 20241213
  Transmission Date: 20250115
  Serious: Yes (Hospitalization)
  Sender: Public
  Company Number: None

PATIENT
  Age: 73 Year
  Sex: Male
  Weight: 57 kg

DRUGS (2)
  1. OLANZAPINE [Suspect]
     Active Substance: OLANZAPINE
     Indication: Weight decreased
     Dosage: FREQUENCY : TWICE A DAY;?
     Route: 048
     Dates: start: 20240905, end: 20240908
  2. GABAPENTIN [Suspect]
     Active Substance: GABAPENTIN

REACTIONS (6)
  - Mental status changes [None]
  - Dyspnoea [None]
  - Delirium [None]
  - Therapy interrupted [None]
  - Extrapyramidal disorder [None]
  - Dyskinesia [None]

NARRATIVE: CASE EVENT DATE: 20240908
